FAERS Safety Report 6238434-5 (Version None)
Quarter: 2009Q2

REPORT INFORMATION
  Report Type: 
  Country: None (occurrence: None)
  Receive Date: 20090622
  Receipt Date: 20090611
  Transmission Date: 20091009
  Serious: Yes (Other)
  Sender: FDA-Public Use
  Company Number: US-BAYER-200923426NA

PATIENT
  Age: 36 Year
  Sex: Female

DRUGS (5)
  1. MIRENA [Suspect]
     Indication: VAGINAL HAEMORRHAGE
     Dosage: CONTINUOUS
     Route: 015
     Dates: start: 20090331, end: 20090610
  2. MIRENA [Suspect]
     Dosage: CONTINUOUS
     Route: 015
     Dates: start: 20090220, end: 20090331
  3. ALPRAZOLAM [Concomitant]
     Indication: PANIC ATTACK
  4. ALBUTEROL [Concomitant]
     Indication: ASTHMA
  5. OMEPRAZOLE [Concomitant]
     Indication: PEPTIC ULCER

REACTIONS (17)
  - ABDOMINAL DISTENSION [None]
  - ABDOMINAL PAIN LOWER [None]
  - ADENOMYOSIS [None]
  - ARTHRALGIA [None]
  - BACK PAIN [None]
  - COMPLICATION OF DEVICE INSERTION [None]
  - ENDOMETRIAL DISORDER [None]
  - HYPERHIDROSIS [None]
  - IUCD COMPLICATION [None]
  - NO ADVERSE EVENT [None]
  - OVARIAN ENLARGEMENT [None]
  - PAIN [None]
  - PAIN IN EXTREMITY [None]
  - PYREXIA [None]
  - UTERINE ENLARGEMENT [None]
  - UTERINE LEIOMYOMA [None]
  - VAGINAL HAEMORRHAGE [None]
